FAERS Safety Report 5362479-0 (Version None)
Quarter: 2007Q2

REPORT INFORMATION
  Report Type: 
  Country: None (occurrence: None)
  Receive Date: 20070530
  Receipt Date: 20070320
  Transmission Date: 20071010
  Serious: No
  Sender: FDA-Public Use
  Company Number: 2007PV032116

PATIENT
  Age: 57 Year
  Sex: Female
  Weight: 139.7079 kg

DRUGS (7)
  1. BYETTA [Suspect]
     Indication: DIABETES MELLITUS NON-INSULIN-DEPENDENT
     Dosage: 10;5;10;5 MCG;BID;SC
     Route: 058
     Dates: start: 20060601, end: 20060801
  2. BYETTA [Suspect]
     Indication: DIABETES MELLITUS NON-INSULIN-DEPENDENT
     Dosage: 10;5;10;5 MCG;BID;SC
     Route: 058
     Dates: start: 20060301, end: 20061001
  3. BYETTA [Suspect]
     Indication: DIABETES MELLITUS NON-INSULIN-DEPENDENT
     Dosage: 10;5;10;5 MCG;BID;SC
     Route: 058
     Dates: start: 20060801
  4. BYETTA [Suspect]
     Indication: DIABETES MELLITUS NON-INSULIN-DEPENDENT
     Dosage: 10;5;10;5 MCG;BID;SC
     Route: 058
     Dates: start: 20061001
  5. METFORMIN HCL [Concomitant]
  6. RISPERDAL [Concomitant]
  7. LAMICTAL [Concomitant]

REACTIONS (5)
  - DECREASED APPETITE [None]
  - DRUG INEFFECTIVE [None]
  - DYSGEUSIA [None]
  - INJECTION SITE EXTRAVASATION [None]
  - WEIGHT DECREASED [None]
